FAERS Safety Report 18223631 (Version 3)
Quarter: 2021Q1

REPORT INFORMATION
  Report Type: Spontaneous
  Country: US (occurrence: US)
  Receive Date: 20200902
  Receipt Date: 20210329
  Transmission Date: 20210419
  Serious: Yes (Other)
  Sender: FDA-Public Use
  Company Number: US-PFIZER INC-2020339711

PATIENT
  Age: 86 Year
  Sex: Female

DRUGS (1)
  1. XELJANZ XR [Suspect]
     Active Substance: TOFACITINIB CITRATE
     Dosage: 11 MG

REACTIONS (8)
  - Pelvic fracture [Unknown]
  - Fall [Unknown]
  - Upper limb fracture [Unknown]
  - Hypoacusis [Unknown]
  - Memory impairment [Unknown]
  - Gait inability [Unknown]
  - Lower limb fracture [Unknown]
  - Dysarthria [Unknown]
